FAERS Safety Report 8001412-X (Version None)
Quarter: 2011Q4

REPORT INFORMATION
  Report Type: 
  Country: None (occurrence: None)
  Receive Date: 20111222
  Receipt Date: 20111211
  Transmission Date: 20120403
  Serious: Yes (Hospitalization, Other)
  Sender: FDA-Public Use
  Company Number: IL-ELI_LILLY_AND_COMPANY-IL201111005576

PATIENT
  Age: 54 Year
  Sex: Male

DRUGS (1)
  1. EFFIENT [Suspect]
     Indication: ACUTE MYOCARDIAL INFARCTION
     Dosage: 60 MG, LOADING DOSE

REACTIONS (3)
  - HAEMOGLOBIN DECREASED [None]
  - HAEMORRHAGE URINARY TRACT [None]
  - VASCULAR PSEUDOANEURYSM [None]
